FAERS Safety Report 10574235 (Version 1)
Quarter: 2014Q4

REPORT INFORMATION
  Report Type: Spontaneous
  Country: CN (occurrence: CN)
  Receive Date: 20141110
  Receipt Date: 20141110
  Transmission Date: 20150529
  Serious: Yes (Life-Threatening, Hospitalization)
  Sender: FDA-Public Use
  Company Number: CN-ROXANE LABORATORIES, INC.-2014-RO-01692RO

PATIENT
  Age: 49 Year
  Sex: Male

DRUGS (1)
  1. DIGOXIN. [Suspect]
     Active Substance: DIGOXIN
     Indication: HYPERTENSION
     Dosage: 0.5 MG
     Route: 065

REACTIONS (3)
  - Acute coronary syndrome [Unknown]
  - Aneurysm ruptured [Recovered/Resolved]
  - Drug prescribing error [Unknown]
